FAERS Safety Report 26051037 (Version 1)
Quarter: 2025Q4

REPORT INFORMATION
  Report Type: Spontaneous
  Country: CN (occurrence: CN)
  Receive Date: 20251117
  Receipt Date: 20251117
  Transmission Date: 20260118
  Serious: Yes (Life-Threatening, Hospitalization)
  Sender: GLAXOSMITHKLINE
  Company Number: CN-GSK-CN2025CHI146635

PATIENT
  Age: 76 Year
  Sex: Male
  Weight: 52.5 kg

DRUGS (3)
  1. LAMICTAL [Suspect]
     Active Substance: LAMOTRIGINE
     Indication: Epilepsy
     Dosage: 25 MG, QD (ONE TABLET ADDED EVERY OTHER WEEK)
  2. VALPROATE SODIUM [Concomitant]
     Active Substance: VALPROATE SODIUM
     Indication: Depressed level of consciousness
     Dosage: 5.0 MG, BID OVER 10 YEARS
  3. VALPROATE SODIUM [Concomitant]
     Active Substance: VALPROATE SODIUM
     Indication: Convulsions local

REACTIONS (1)
  - Dermatitis [Recovering/Resolving]

NARRATIVE: CASE EVENT DATE: 20251015
